FAERS Safety Report 5235974-2 (Version None)
Quarter: 2007Q1

REPORT INFORMATION
  Report Type: 
  Country: None (occurrence: None)
  Receive Date: 20061208
  Receipt Date: 20060124
  Transmission Date: 20070707
  Serious: Yes (Other)
  Sender: FDA-Public Use
  Company Number: 2005UW19205

PATIENT
  Age: 78 Year
  Sex: Male
  Weight: 90.718 kg

DRUGS (7)
  1. CRESTOR [Suspect]
     Indication: BLOOD CHOLESTEROL INCREASED
     Dates: start: 20051207
  2. INSULIN [Suspect]
  3. INSULIN [Suspect]
     Dosage: HIGHER DOSE
  4. ATENOLOL [Concomitant]
  5. LISINOPRIL [Concomitant]
  6. PROSCAR [Concomitant]
  7. VITAMINS [Concomitant]

REACTIONS (1)
  - HYPOGLYCAEMIA [None]
